FAERS Safety Report 23284858 (Version 1)
Quarter: 2023Q4

REPORT INFORMATION
  Report Type: Spontaneous
  Country: ES (occurrence: ES)
  Receive Date: 20231211
  Receipt Date: 20231211
  Transmission Date: 20240109
  Serious: Yes (Hospitalization)
  Sender: FDA-Public Use
  Company Number: None

PATIENT
  Age: 74 Year
  Sex: Female

DRUGS (4)
  1. DEXAMETHASONE [Suspect]
     Active Substance: DEXAMETHASONE
     Indication: Immune effector cell-associated neurotoxicity syndrome
     Route: 042
     Dates: start: 20230801, end: 20230908
  2. FOSCAVIR [Suspect]
     Active Substance: FOSCARNET SODIUM
     Indication: Cytomegalovirus infection reactivation
     Dosage: 1 BOTTLE OF 250 ML, 3.850 MG AS A 2-HOUR INTRAVENOUS INFUSION, ON MONDAYS, WEDNESDAYS AND FRIDAYS
     Route: 042
     Dates: start: 20230803, end: 20230925
  3. YESCARTA [Suspect]
     Active Substance: AXICABTAGENE CILOLEUCEL
     Indication: Diffuse large B-cell lymphoma refractory
     Dosage: SINGLE DOSE. 0.4 - 2 X 10E8 CELLS DISPERSION FOR INFUSION 1 BAG OF 68 ML
     Route: 042
     Dates: start: 20230726, end: 20230726
  4. TOCILIZUMAB [Suspect]
     Active Substance: TOCILIZUMAB
     Indication: Cytokine release syndrome
     Dosage: TOCILIZUMAB 8 MG/KG (560 MG)
     Route: 042
     Dates: start: 20230727, end: 20230729

REACTIONS (2)
  - Hypogammaglobulinaemia [Recovering/Resolving]
  - Neuropathy peripheral [Recovering/Resolving]

NARRATIVE: CASE EVENT DATE: 20230823
